FAERS Safety Report 4750425-X (Version None)
Quarter: 2005Q3

REPORT INFORMATION
  Report Type: 
  Country: None (occurrence: None)
  Receive Date: 20050819
  Receipt Date: 20050808
  Transmission Date: 20060218
  Serious: Yes (Hospitalization, Other)
  Sender: FDA-Public Use
  Company Number: HQWYE849811AUG05

PATIENT
  Age: 26 Year
  Sex: Male

DRUGS (8)
  1. TAZOCIN (PIPERACILLIN/TAZOBACTAM, INJECTION) [Suspect]
     Indication: PSEUDOMONAS INFECTION
     Dosage: SEE IMAGE
     Route: 042
     Dates: start: 20050311, end: 20050326
  2. TAZOCIN (PIPERACILLIN/TAZOBACTAM, INJECTION) [Suspect]
     Indication: STAPHYLOCOCCAL INFECTION
     Dosage: SEE IMAGE
     Route: 042
     Dates: start: 20050311, end: 20050326
  3. TAZOCIN (PIPERACILLIN/TAZOBACTAM, INJECTION) [Suspect]
     Indication: WOUND INFECTION
     Dosage: SEE IMAGE
     Route: 042
     Dates: start: 20050311, end: 20050326
  4. TAZOCIN (PIPERACILLIN/TAZOBACTAM, INJECTION) [Suspect]
     Indication: PSEUDOMONAS INFECTION
     Dosage: SEE IMAGE
     Route: 042
     Dates: start: 20050330, end: 20050331
  5. TAZOCIN (PIPERACILLIN/TAZOBACTAM, INJECTION) [Suspect]
     Indication: STAPHYLOCOCCAL INFECTION
     Dosage: SEE IMAGE
     Route: 042
     Dates: start: 20050330, end: 20050331
  6. TAZOCIN (PIPERACILLIN/TAZOBACTAM, INJECTION) [Suspect]
     Indication: WOUND INFECTION
     Dosage: SEE IMAGE
     Route: 042
     Dates: start: 20050330, end: 20050331
  7. VANCOMYCIN [Suspect]
     Indication: STAPHYLOCOCCAL INFECTION
     Dosage: 1 G 1X PER 12 HR, INTRAVENOUS
     Route: 042
     Dates: start: 20050311, end: 20050326
  8. VANCOMYCIN [Suspect]
     Indication: WOUND INFECTION
     Dosage: 1 G 1X PER 12 HR, INTRAVENOUS
     Route: 042
     Dates: start: 20050311, end: 20050326

REACTIONS (9)
  - BACK PAIN [None]
  - BONE PAIN [None]
  - CHILLS [None]
  - EYE PAIN [None]
  - HEADACHE [None]
  - LEUKOPENIA [None]
  - PRURITUS [None]
  - PYREXIA [None]
  - THROMBOCYTOPENIA [None]
